FAERS Safety Report 8974570 (Version 2)
Quarter: 2013Q1

REPORT INFORMATION
  Report Type: Report from Study
  Country: US (occurrence: US)
  Receive Date: 20121220
  Receipt Date: 20130208
  Transmission Date: 20140127
  Serious: Yes (Death, Hospitalization)
  Sender: FDA-Public Use
  Company Number: US-BAYER-2012-126898

PATIENT
  Age: 66 Year
  Sex: Female

DRUGS (3)
  1. SORAFENIB (RAF KINASE INHIBITOR) [Suspect]
     Indication: HEPATIC CANCER
     Dosage: 400 MG, BID
  2. SORAFENIB (RAF KINASE INHIBITOR) [Suspect]
     Indication: HEPATIC CANCER
     Dosage: 200 MG, BID
  3. SORAFENIB (RAF KINASE INHIBITOR) [Suspect]
     Indication: HEPATIC CANCER
     Dosage: DAILY DOSE 800 MG
     Route: 048
     Dates: start: 20121121

REACTIONS (4)
  - Ammonia increased [Recovered/Resolved]
  - Death [Fatal]
  - Incorrect dose administered [None]
  - Fatigue [None]
